FAERS Safety Report 10576805 (Version 1)
Quarter: 2014Q4

REPORT INFORMATION
  Report Type: Spontaneous
  Country: GB (occurrence: GB)
  Receive Date: 20141111
  Receipt Date: 20141111
  Transmission Date: 20150529
  Serious: Yes (Death, Other)
  Sender: FDA-Public Use
  Company Number: GB-TEVA-520184ISR

PATIENT
  Age: 89 Year
  Sex: Female

DRUGS (1)
  1. AMOXICILLIN W/CLAVULANIC ACID [Suspect]
     Active Substance: AMOXICILLIN\CLAVULANIC ACID

REACTIONS (2)
  - Cardiac arrest [Fatal]
  - Hypersensitivity [Not Recovered/Not Resolved]
